FAERS Safety Report 7914505-X (Version None)
Quarter: 2011Q4

REPORT INFORMATION
  Report Type: 
  Country: None (occurrence: None)
  Receive Date: 20111110
  Receipt Date: 20111021
  Transmission Date: 20120403
  Serious: Yes (Hospitalization, Other)
  Sender: FDA-Public Use
  Company Number: JPI-P-015068

PATIENT
  Age: 65 Year
  Sex: Male
  Weight: 110.2241 kg

DRUGS (22)
  1. METOPROLOL SUCCINATE [Concomitant]
  2. ATORVASTATIN CALCIUM [Concomitant]
  3. ASPIRIN [Concomitant]
  4. NIACIN [Concomitant]
  5. REGULAR INSULIN [Concomitant]
  6. POTASSIUM [Concomitant]
  7. XYREM [Suspect]
     Indication: SLEEP DISORDER
     Dosage: ORAL (3 GM NIGHTLY/REPEAT IF NEEDED), ORAL (3.75 GM ONCE TO TWICE NIGHTLY), ORAL
     Route: 048
     Dates: start: 20090301
  8. XYREM [Suspect]
     Indication: RESTLESS LEGS SYNDROME
     Dosage: ORAL (3 GM NIGHTLY/REPEAT IF NEEDED), ORAL (3.75 GM ONCE TO TWICE NIGHTLY), ORAL
     Route: 048
     Dates: start: 20090301
  9. XYREM [Suspect]
     Indication: INSOMNIA
     Dosage: ORAL (3 GM NIGHTLY/REPEAT IF NEEDED), ORAL (3.75 GM ONCE TO TWICE NIGHTLY), ORAL
     Route: 048
     Dates: start: 20090301
  10. ACTYLSALICYLIC ACID [Concomitant]
  11. LEVOTHYROXINE SODIUM [Concomitant]
  12. MODAFINIL [Concomitant]
  13. TESTOSTERONE PELLETS [Concomitant]
  14. SPIRONOLACTONE [Concomitant]
  15. TAPENTADOL [Concomitant]
  16. GABAPENTIN [Concomitant]
  17. FUROSEMIDE [Concomitant]
  18. XYREM [Suspect]
  19. PRAMIPEXOLE DIHYDROCHLORIDE [Concomitant]
  20. TORSEMIDE [Concomitant]
  21. XYREM [Suspect]
  22. CLONAZEPAM [Concomitant]

REACTIONS (8)
  - INTERVERTEBRAL DISC PROTRUSION [None]
  - SPINAL FRACTURE [None]
  - HERNIA GANGRENOUS [None]
  - INSOMNIA [None]
  - NEURALGIA [None]
  - SCIATICA [None]
  - FALL [None]
  - SPINAL COMPRESSION FRACTURE [None]
